FAERS Safety Report 8446161-9 (Version None)
Quarter: 2012Q2

REPORT INFORMATION
  Report Type: 
  Country: None (occurrence: None)
  Receive Date: 20120323
  Receipt Date: 20110907
  Transmission Date: 20120825
  Serious: Yes (Other)
  Sender: FDA-Public Use
  Company Number: 163-21880-11081462

PATIENT
  Age: 74 Year
  Sex: Female

DRUGS (4)
  1. REVLIMID [Suspect]
  2. WARFARIN SODIUM [Concomitant]
  3. REVLIMID [Suspect]
     Indication: MULTIPLE MYELOMA
     Dosage: 15 MG, DAILY X 21 DAYS, PO
     Route: 048
     Dates: start: 20100722
  4. STEROIDS [Concomitant]

REACTIONS (1)
  - BASEDOW'S DISEASE [None]
